FAERS Safety Report 8606735 (Version 2)
Quarter: 2013Q3

REPORT INFORMATION
  Report Type: Spontaneous
  Country: US (occurrence: US)
  Receive Date: 20120611
  Receipt Date: 20130722
  Transmission Date: 20140515
  Serious: Yes (Disabling)
  Sender: FDA-Public Use
  Company Number: US-ASTRAZENECA-2012SE34482

PATIENT
  Age: 60 Year
  Sex: Female
  Weight: 68 kg

DRUGS (8)
  1. NEXIUM [Suspect]
     Dosage: ONE TIME A DAY
     Route: 048
  2. TUMS [Concomitant]
  3. ROLAIDS [Concomitant]
  4. HYDROCHLOROPHIAVIBE [Concomitant]
  5. ZANTAC [Concomitant]
  6. LISINOPRIL [Concomitant]
  7. APENOLOL [Concomitant]
  8. NORCO [Concomitant]

REACTIONS (4)
  - Back injury [Unknown]
  - Osteoporosis [Unknown]
  - Multiple fractures [Unknown]
  - Bone density abnormal [Unknown]
